FAERS Safety Report 4324902-X (Version None)
Quarter: 2004Q1

REPORT INFORMATION
  Report Type: 
  Country: None (occurrence: None)
  Receive Date: 20040324
  Receipt Date: 20040324
  Transmission Date: 20041129
  Serious: Yes (Hospitalization)
  Sender: FDA-Public Use
  Company Number: None

PATIENT
  Sex: Female
  Weight: 57.5 kg

DRUGS (13)
  1. GLEEVEC [Suspect]
     Indication: ACUTE MYELOID LEUKAEMIA
     Dosage: 400 MG QD ORAL
     Route: 048
     Dates: start: 20040314, end: 20040323
  2. GLEEVEC [Suspect]
     Indication: NEOPLASM RECURRENCE
     Dosage: 400 MG QD ORAL
     Route: 048
     Dates: start: 20040314, end: 20040323
  3. ACYCLOVIR [Concomitant]
  4. ZOSYN [Concomitant]
  5. GENTAMICIN [Concomitant]
  6. VANCOMYCIN [Concomitant]
  7. CIPROFLOXIN [Concomitant]
  8. OXYCODONE [Concomitant]
  9. CASOPFUNGIN [Concomitant]
  10. ABELCET [Concomitant]
  11. VORCONZOLE [Concomitant]
  12. DAUNORUBICIN HCL [Concomitant]
  13. CYTARABINE [Concomitant]

REACTIONS (13)
  - BLOOD ALBUMIN DECREASED [None]
  - BLOOD BILIRUBIN INCREASED [None]
  - BRONCHOPULMONARY ASPERGILLOSIS [None]
  - CHEST DISCOMFORT [None]
  - CONDITION AGGRAVATED [None]
  - DRUG INTERACTION [None]
  - DRUG TOXICITY [None]
  - DYSPNOEA [None]
  - LIVER DISORDER [None]
  - OEDEMA [None]
  - OEDEMA PERIPHERAL [None]
  - PYREXIA [None]
  - RENAL IMPAIRMENT [None]
